FAERS Safety Report 13739881 (Version 5)
Quarter: 2025Q3

REPORT INFORMATION
  Report Type: Report from Study
  Country: EU (occurrence: EU)
  Receive Date: 20170711
  Receipt Date: 20250903
  Transmission Date: 20251021
  Serious: Yes (Other)
  Sender: AUROBINDO
  Company Number: EU-AUROBINDO-AUR-APL-2017-37190

PATIENT
  Sex: Male

DRUGS (8)
  1. AMITRIPTYLINE HYDROCHLORIDE [Interacting]
     Active Substance: AMITRIPTYLINE HYDROCHLORIDE
     Indication: Nerve injury
     Route: 065
  2. AMITRIPTYLINE HYDROCHLORIDE [Interacting]
     Active Substance: AMITRIPTYLINE HYDROCHLORIDE
     Indication: Limb injury
  3. ACETAMINOPHEN [Interacting]
     Active Substance: ACETAMINOPHEN
     Indication: Limb injury
     Route: 065
  4. ACETAMINOPHEN [Interacting]
     Active Substance: ACETAMINOPHEN
     Indication: Nerve injury
  5. PREDNISONE [Interacting]
     Active Substance: PREDNISONE
     Indication: Nerve injury
     Route: 065
  6. PREDNISONE [Interacting]
     Active Substance: PREDNISONE
     Indication: Limb injury
  7. PREGABALIN [Interacting]
     Active Substance: PREGABALIN
     Indication: Nerve injury
     Route: 065
  8. PREGABALIN [Interacting]
     Active Substance: PREGABALIN
     Indication: Limb injury
     Dosage: UNK UNK, TWO TIMES A DAY
     Route: 065

REACTIONS (9)
  - Blindness transient [Not Recovered/Not Resolved]
  - Colour blindness [Not Recovered/Not Resolved]
  - Astigmatism [Not Recovered/Not Resolved]
  - Eye disorder [Unknown]
  - Eye irritation [Unknown]
  - Vision blurred [Unknown]
  - Visual impairment [Not Recovered/Not Resolved]
  - Drug interaction [Unknown]
  - Colour blindness acquired [Not Recovered/Not Resolved]
